FAERS Safety Report 6422363-8 (Version None)
Quarter: 2009Q4

REPORT INFORMATION
  Report Type: 
  Country: None (occurrence: None)
  Receive Date: 20091030
  Receipt Date: 20091020
  Transmission Date: 20100525
  Serious: Yes (Hospitalization)
  Sender: FDA-Public Use
  Company Number: AR-AMGEN-US370678

PATIENT
  Sex: Male
  Weight: 60 kg

DRUGS (10)
  1. ENBREL [Suspect]
     Indication: DRUG USE FOR UNKNOWN INDICATION
     Route: 058
     Dates: start: 20070208, end: 20090906
  2. LIPITOR [Concomitant]
     Indication: BLOOD CHOLESTEROL INCREASED
     Route: 048
  3. ZOLOFT [Concomitant]
     Indication: DEPRESSION
     Dosage: 1 TABLET UNSPECIFIED FREQUENCY
     Route: 048
  4. MEDOCOR [Concomitant]
     Route: 065
  5. OLANZAPINE [Concomitant]
     Route: 065
  6. ZOLPIDEM [Concomitant]
     Dosage: 1 TABLET UNSPECIFIED FREQUENCY
     Route: 048
  7. ACETAMINOPHEN [Concomitant]
     Dosage: 1 TABLET UNSPECIFIED FREQUENCY
     Route: 048
  8. CLOPIDOGREL [Concomitant]
     Route: 048
  9. CORTISONE [Concomitant]
     Indication: RHEUMATOID ARTHRITIS
     Route: 065
  10. DIOVAN [Concomitant]
     Indication: HYPERTENSION
     Route: 048

REACTIONS (3)
  - BRONCHITIS [None]
  - BRONCHOSPASM [None]
  - INFLAMMATION [None]
